FAERS Safety Report 7597748-7 (Version None)
Quarter: 2011Q3

REPORT INFORMATION
  Report Type: 
  Country: None (occurrence: None)
  Receive Date: 20110708
  Receipt Date: 20110701
  Transmission Date: 20111222
  Serious: Yes (Hospitalization)
  Sender: FDA-Public Use
  Company Number: FR-GLAXOSMITHKLINE-B0730227A

PATIENT
  Sex: Male

DRUGS (9)
  1. TRAMADOL HCL [Concomitant]
  2. CATACOL [Concomitant]
  3. CEFTAZIDIME SODIUM [Suspect]
     Indication: PSEUDOMONAS INFECTION
     Dosage: 4G PER DAY
     Route: 042
     Dates: start: 20110314, end: 20110505
  4. OFLOXACIN [Suspect]
     Indication: OSTEOARTHRITIS
     Dosage: 200MG PER DAY
     Route: 048
     Dates: start: 20110314, end: 20110505
  5. SERETIDE [Concomitant]
  6. DISCOTRINE [Concomitant]
  7. LEVOTHYROXINE SODIUM [Concomitant]
  8. PREVISCAN [Concomitant]
  9. RIFADIN [Suspect]
     Indication: PSEUDOMONAS INFECTION
     Dosage: 600MG TWICE PER DAY
     Route: 048
     Dates: start: 20110314, end: 20110505

REACTIONS (3)
  - PURPURA [None]
  - RASH GENERALISED [None]
  - PRURITUS [None]
